FAERS Safety Report 19127760 (Version 1)
Quarter: 2021Q2

REPORT INFORMATION
  Report Type: Spontaneous
  Country: US (occurrence: US)
  Receive Date: 20210413
  Receipt Date: 20210413
  Transmission Date: 20210717
  Serious: No
  Sender: FDA-Public Use
  Company Number: None

PATIENT
  Sex: Female

DRUGS (1)
  1. ZIEXTENZO [Suspect]
     Active Substance: PEGFILGRASTIM-BMEZ
     Indication: NEOPLASM MALIGNANT
     Dosage: ?          OTHER FREQUENCY:EVERY 21 DAYS; INJECT 1 SYRINGR UNDER THE SKIN 24 HRS AFTER CHEMOTHERAPY EVERY 21 DAYS?
     Route: 058
     Dates: start: 20210227

REACTIONS (1)
  - White blood cell count increased [None]
